FAERS Safety Report 8832455 (Version 1)
Quarter: 2012Q4

REPORT INFORMATION
  Report Type: Spontaneous
  Country: US (occurrence: None)
  Receive Date: 20121005
  Receipt Date: 20121005
  Transmission Date: 20130627
  Serious: Yes (Hospitalization)
  Sender: FDA-Public Use
  Company Number: None

PATIENT
  Age: 47 Year
  Sex: Female
  Weight: 76.66 kg

DRUGS (2)
  1. MIRENA [Suspect]
     Dates: start: 20090407, end: 20100813
  2. MIRENA [Suspect]
     Indication: BIRTH CONTROL
     Dates: start: 20090407, end: 20100813

REACTIONS (3)
  - Gastric disorder [None]
  - Haemorrhage [None]
  - Device dislocation [None]
